FAERS Safety Report 7796004-1 (Version None)
Quarter: 2011Q4

REPORT INFORMATION
  Report Type: 
  Country: None (occurrence: None)
  Receive Date: 20111004
  Receipt Date: 20110930
  Transmission Date: 20120403
  Serious: Yes (Other)
  Sender: FDA-Public Use
  Company Number: US-PFIZER INC-2011234283

PATIENT
  Sex: Female
  Weight: 79.365 kg

DRUGS (3)
  1. NEXIUM [Concomitant]
     Indication: DYSPEPSIA
  2. LIPITOR [Suspect]
     Indication: BLOOD CHOLESTEROL INCREASED
     Dosage: 40 MG, 1X/DAY
     Route: 048
  3. NEXIUM [Concomitant]
     Indication: BARRETT'S OESOPHAGUS
     Dosage: UNK

REACTIONS (4)
  - LOW DENSITY LIPOPROTEIN ABNORMAL [None]
  - EYE DISORDER [None]
  - BLOOD CHOLESTEROL INCREASED [None]
  - ARTHRALGIA [None]
